FAERS Safety Report 5486691-5 (Version None)
Quarter: 2007Q4

REPORT INFORMATION
  Report Type: 
  Country: None (occurrence: None)
  Receive Date: 20071016
  Receipt Date: 20071015
  Transmission Date: 20080405
  Serious: Yes (Life-Threatening)
  Sender: FDA-Public Use
  Company Number: JP-BAYER-200710694BYL

PATIENT
  Age: 77 Year
  Sex: Female

DRUGS (2)
  1. CIPROXAN-I.V. [Suspect]
     Indication: CATHETER RELATED INFECTION
     Dosage: TOTAL DAILY DOSE: 600 MG  UNIT DOSE: 300 MG
     Route: 042
  2. TICLOPIDINE HCL [Concomitant]
     Route: 048

REACTIONS (1)
  - AGRANULOCYTOSIS [None]
